FAERS Safety Report 25748270 (Version 1)
Quarter: 2025Q3

REPORT INFORMATION
  Report Type: Spontaneous
  Country: US (occurrence: US)
  Receive Date: 20250902
  Receipt Date: 20250902
  Transmission Date: 20251021
  Serious: No
  Sender: SANOFI AVENTIS
  Company Number: US-SA-2025SA255787

PATIENT
  Age: 43 Year
  Sex: Female

DRUGS (2)
  1. DUPIXENT [Suspect]
     Active Substance: DUPILUMAB
     Indication: Dermatitis atopic
     Dosage: 300 MG, QOW
     Route: 058
  2. SPIRONOLACTONE [Suspect]
     Active Substance: SPIRONOLACTONE

REACTIONS (10)
  - Blood testosterone increased [Unknown]
  - Hair growth abnormal [Unknown]
  - Skin swelling [Unknown]
  - Throat tightness [Unknown]
  - Illness [Unknown]
  - Therapeutic response shortened [Unknown]
  - Product administration error [Unknown]
  - Rash [Unknown]
  - Poor quality product administered [Unknown]
  - Product storage error [Unknown]
